FAERS Safety Report 5145394-7 (Version None)
Quarter: 2006Q4

REPORT INFORMATION
  Report Type: 
  Country: None (occurrence: None)
  Receive Date: 20061031
  Receipt Date: 20061018
  Transmission Date: 20070319
  Serious: Yes (Other)
  Sender: FDA-Public Use
  Company Number: 2006127655

PATIENT
  Age: 12 Year
  Sex: Female
  Weight: 46.2669 kg

DRUGS (1)
  1. BENADRYL [Suspect]
     Dosage: 2 TABLETS ONCE, ORAL
     Route: 048
     Dates: start: 20061018, end: 20061018

REACTIONS (1)
  - DELUSION [None]
